FAERS Safety Report 9067187 (Version 1)
Quarter: 2013Q1

REPORT INFORMATION
  Report Type: Spontaneous
  Country: US (occurrence: US)
  Receive Date: 20130214
  Receipt Date: 20130214
  Transmission Date: 20140127
  Serious: Yes (Other)
  Sender: FDA-Public Use
  Company Number: US-PFIZER INC-2013055177

PATIENT
  Age: 75 Year
  Sex: Male
  Weight: 77.1 kg

DRUGS (1)
  1. DILANTIN [Suspect]
     Indication: EPILEPSY
     Dosage: 100 MG, 3X/DAY
     Route: 048

REACTIONS (3)
  - Anticonvulsant drug level decreased [Unknown]
  - Epileptic aura [Unknown]
  - Back disorder [Unknown]
